FAERS Safety Report 7062304-6 (Version None)
Quarter: 2010Q4

REPORT INFORMATION
  Report Type: 
  Country: None (occurrence: None)
  Receive Date: 20101026
  Receipt Date: 20101013
  Transmission Date: 20110411
  Serious: Yes (Death, Hospitalization, Other)
  Sender: FDA-Public Use
  Company Number: US-AMGEN LTD.-QUU444042

PATIENT

DRUGS (4)
  1. NPLATE [Suspect]
     Indication: IDIOPATHIC THROMBOCYTOPENIC PURPURA
     Dosage: UNK UNK, UNK
     Dates: start: 20100426
  2. NPLATE [Suspect]
     Indication: THROMBOCYTOPENIA
     Dates: start: 20100426
  3. CORTICOSTEROID NOS [Concomitant]
     Dosage: UNK UNK, UNK
     Dates: start: 20100129
  4. PLASMA [Concomitant]

REACTIONS (3)
  - INFECTION [None]
  - PANCREATITIS ACUTE [None]
  - PLATELET COUNT ABNORMAL [None]
